FAERS Safety Report 11534931 (Version 1)
Quarter: 2015Q3

REPORT INFORMATION
  Report Type: Report from Study
  Country: DE (occurrence: DE)
  Receive Date: 20150922
  Receipt Date: 20150922
  Transmission Date: 20151125
  Serious: Yes (Hospitalization, Other)
  Sender: FDA-Public Use
  Company Number: DE-ABBVIE-15P-062-1463702-00

PATIENT
  Age: 64 Year
  Sex: Male
  Weight: 90 kg

DRUGS (12)
  1. TRUVADA [Suspect]
     Active Substance: EMTRICITABINE\TENOFOVIR DISOPROXIL FUMARATE
     Indication: HIV INFECTION
     Dosage: 200/245 MG
     Route: 048
     Dates: start: 20130715
  2. ATORVASTATINE [Concomitant]
     Active Substance: ATORVASTATIN
  3. KALETRA [Suspect]
     Active Substance: LOPINAVIR\RITONAVIR
     Indication: HIV INFECTION
     Dosage: 200/50 MG
     Route: 048
     Dates: start: 20130715, end: 201410
  4. ASPIRIN. [Concomitant]
     Active Substance: ASPIRIN
     Indication: PROPHYLAXIS
  5. ZOPICLONE [Concomitant]
     Active Substance: ZOPICLONE
     Indication: PRODUCT USED FOR UNKNOWN INDICATION
  6. MIRTAZAPINE. [Concomitant]
     Active Substance: MIRTAZAPINE
     Indication: PRODUCT USED FOR UNKNOWN INDICATION
  7. METOCLOPRAMIDE. [Concomitant]
     Active Substance: METOCLOPRAMIDE
     Indication: PRODUCT USED FOR UNKNOWN INDICATION
  8. SEVREDOL [Concomitant]
     Active Substance: MORPHINE
     Indication: PRODUCT USED FOR UNKNOWN INDICATION
  9. ALLOPURINOL. [Concomitant]
     Active Substance: ALLOPURINOL
     Indication: PRODUCT USED FOR UNKNOWN INDICATION
  10. CLEXANE [Concomitant]
     Active Substance: ENOXAPARIN SODIUM
     Indication: PRODUCT USED FOR UNKNOWN INDICATION
     Route: 058
  11. ATORVASTATINE [Concomitant]
     Active Substance: ATORVASTATIN
     Indication: HYPERLIPIDAEMIA
     Dates: start: 201407
  12. FTC/TDF + LPV/R [Concomitant]
     Indication: PRODUCT USED FOR UNKNOWN INDICATION
     Dates: start: 201307

REACTIONS (37)
  - Gastrointestinal infection [Recovered/Resolved]
  - Hyperlipidaemia [Unknown]
  - Plasmacytosis [Unknown]
  - Extrasystoles [Unknown]
  - Diarrhoea [Recovered/Resolved]
  - Facial paresis [Unknown]
  - Obesity [Not Recovered/Not Resolved]
  - Hypoaesthesia [Unknown]
  - Cardiac valve disease [Unknown]
  - Arthralgia [Unknown]
  - Cerebral infarction [Recovered/Resolved]
  - Burkitt^s lymphoma [Recovered/Resolved]
  - Paraesthesia [Unknown]
  - Spinal pain [Unknown]
  - Myocardial infarction [Unknown]
  - General physical health deterioration [Unknown]
  - Hepatic lesion [Unknown]
  - Eosinophilia [Unknown]
  - Atrioventricular block [Unknown]
  - Transaminases increased [Unknown]
  - Degenerative mitral valve disease [Unknown]
  - Inguinal mass [Unknown]
  - Intervertebral disc displacement [Unknown]
  - Depressed mood [Unknown]
  - Renal cyst [Unknown]
  - Bundle branch block right [Unknown]
  - Cerebral atrophy [Unknown]
  - Prostatic mass [Unknown]
  - Osteoporosis [Unknown]
  - Arteriosclerosis coronary artery [Unknown]
  - Viral infection [Unknown]
  - Pain [Unknown]
  - Cerebral arteriosclerosis [Unknown]
  - Hypertension [Unknown]
  - Spinal column stenosis [Unknown]
  - Pain in extremity [Unknown]
  - Intervertebral disc protrusion [Unknown]

NARRATIVE: CASE EVENT DATE: 20131217
